FAERS Safety Report 17661304 (Version 6)
Quarter: 2020Q4

REPORT INFORMATION
  Report Type: Spontaneous
  Country: US (occurrence: US)
  Receive Date: 20200413
  Receipt Date: 20201019
  Transmission Date: 20210113
  Serious: Yes (Other)
  Sender: FDA-Public Use
  Company Number: US-SA-2020SA092271

PATIENT

DRUGS (3)
  1. DUPIXENT [Suspect]
     Active Substance: DUPILUMAB
     Dosage: 300 MG, QOW
     Route: 058
     Dates: start: 20200707, end: 2020
  2. DUPIXENT [Suspect]
     Active Substance: DUPILUMAB
     Indication: DERMATITIS ATOPIC
     Dosage: 300 MG, QOW
     Route: 058
     Dates: start: 20190117
  3. OZEMPIC [Suspect]
     Active Substance: SEMAGLUTIDE
     Dosage: UNK
     Route: 065
     Dates: start: 2020

REACTIONS (17)
  - Vaginal infection [Unknown]
  - Dry mouth [Unknown]
  - Oral discomfort [Unknown]
  - Weight decreased [Recovering/Resolving]
  - Rheumatoid arthritis [Unknown]
  - Taste disorder [Recovering/Resolving]
  - Blister [Unknown]
  - Ageusia [Recovering/Resolving]
  - Erythema [Unknown]
  - Rash pruritic [Recovered/Resolved]
  - Cystitis [Unknown]
  - Burn oral cavity [Recovering/Resolving]
  - Pruritus [Unknown]
  - Feeling hot [Unknown]
  - Blister rupture [Unknown]
  - Product use issue [Unknown]
  - Aphthous ulcer [Unknown]

NARRATIVE: CASE EVENT DATE: 2020
